FAERS Safety Report 11515100 (Version 1)
Quarter: 2015Q3

REPORT INFORMATION
  Report Type: Spontaneous
  Country: TR (occurrence: TR)
  Receive Date: 20150916
  Receipt Date: 20150916
  Transmission Date: 20151125
  Serious: Yes (Other)
  Sender: FDA-Public Use
  Company Number: PHHY2015TR106839

PATIENT
  Sex: Female
  Weight: 107 kg

DRUGS (5)
  1. METFORMIN HYDROCHLORIDE SANDOZ [Suspect]
     Active Substance: METFORMIN HYDROCHLORIDE
     Indication: DIABETES MELLITUS
     Dosage: 1000 MG, BID
     Route: 048
  2. EPIXX [Concomitant]
     Active Substance: LEVETIRACETAM
     Indication: TREMOR
     Route: 048
  3. SARILEN//LOSARTAN POTASSIUM [Concomitant]
     Indication: HYPERTENSION
     Route: 048
  4. PAXIL [Concomitant]
     Active Substance: PAROXETINE HYDROCHLORIDE
     Indication: TREMOR
     Route: 048
  5. BELOZOK [Concomitant]
     Active Substance: METOPROLOL SUCCINATE
     Indication: HYPERTENSION
     Dosage: 50 MG, UNK
     Route: 048

REACTIONS (2)
  - Burning sensation [Not Recovered/Not Resolved]
  - Somnolence [Recovered/Resolved]
